FAERS Safety Report 17837858 (Version 1)
Quarter: 2020Q2

REPORT INFORMATION
  Report Type: Spontaneous
  Country: US (occurrence: US)
  Receive Date: 20200528
  Receipt Date: 20200528
  Transmission Date: 20200714
  Serious: No
  Sender: FDA-Public Use
  Company Number: US-SEBELA IRELAND LIMITED-2020SEB00031

PATIENT
  Sex: Male
  Weight: 70.75 kg

DRUGS (2)
  1. RIDAURA [Suspect]
     Active Substance: AURANOFIN
     Indication: ARTHRITIS
  2. RIDAURA [Suspect]
     Active Substance: AURANOFIN
     Indication: BACK PAIN
     Dosage: UNK

REACTIONS (3)
  - Diarrhoea [Unknown]
  - Malaise [Unknown]
  - Abdominal discomfort [Unknown]
